FAERS Safety Report 12876167 (Version 1)
Quarter: 2016Q4

REPORT INFORMATION
  Report Type: Spontaneous
  Country: US (occurrence: US)
  Receive Date: 20161021
  Receipt Date: 20161021
  Transmission Date: 20170207
  Serious: Yes (Disabling)
  Sender: FDA-Public Use
  Company Number: None

PATIENT
  Age: 52 Year
  Sex: Female
  Weight: 99 kg

DRUGS (8)
  1. ATIVAN [Concomitant]
     Active Substance: LORAZEPAM
  2. ESTRIDOL [Concomitant]
  3. CYANOCOBALAM [Concomitant]
  4. MYRBETRIQ [Suspect]
     Active Substance: MIRABEGRON
     Indication: URINARY INCONTINENCE
     Dosage: ?          QUANTITY:1 TABLET(S);?
     Route: 048
     Dates: start: 20161018, end: 20161019
  5. WELLBURTIN [Concomitant]
  6. MOBIC [Concomitant]
     Active Substance: MELOXICAM
  7. WOMANS ONE A DAY [Concomitant]
  8. CINNAMON. [Concomitant]
     Active Substance: CINNAMON

REACTIONS (5)
  - Headache [None]
  - Impaired driving ability [None]
  - Diarrhoea [None]
  - Peripheral swelling [None]
  - Swelling face [None]

NARRATIVE: CASE EVENT DATE: 20161018
